FAERS Safety Report 20750424 (Version 1)
Quarter: 2022Q2

REPORT INFORMATION
  Report Type: Spontaneous
  Country: US (occurrence: None)
  Receive Date: 20220426
  Receipt Date: 20220426
  Transmission Date: 20220721
  Serious: Yes (Other)
  Sender: FDA-Public Use
  Company Number: 2022A154960

PATIENT
  Sex: Female

DRUGS (2)
  1. BYDUREON BCISE [Suspect]
     Active Substance: EXENATIDE
     Indication: Blood glucose abnormal
     Route: 058
     Dates: start: 20220404
  2. BYETTA [Suspect]
     Active Substance: EXENATIDE
     Indication: Blood glucose abnormal
     Dosage: STARTING OFF AT A LOWER DOSE AND THEN INCREASED TO A HIGHER DOSE10.0UG UNKNOWN
     Route: 058

REACTIONS (7)
  - Blood glucose increased [Unknown]
  - Weight decreased [Unknown]
  - Decreased appetite [Recovered/Resolved]
  - Weight increased [Recovered/Resolved]
  - Nausea [Recovered/Resolved]
  - Drug ineffective [Not Recovered/Not Resolved]
  - Wrong technique in device usage process [Recovered/Resolved]
